FAERS Safety Report 7583228-1 (Version None)
Quarter: 2011Q2

REPORT INFORMATION
  Report Type: 
  Country: None (occurrence: None)
  Receive Date: 20110627
  Receipt Date: 20110627
  Transmission Date: 20111010
  Serious: Yes (Hospitalization)
  Sender: FDA-Public Use
  Company Number: None

PATIENT
  Sex: Female
  Weight: 64.9 kg

DRUGS (13)
  1. ZOVIRAX [Concomitant]
  2. CIPRO [Concomitant]
  3. ZOFRAN [Concomitant]
  4. PROTONIX [Concomitant]
  5. MIRALAX [Concomitant]
  6. VELCADE [Suspect]
     Indication: B-CELL LYMPHOMA
     Dosage: 1.6 MG/M2 DAYS 1, 8, 15, 22
  7. MORPHINE CR (MS CONTIN) [Concomitant]
  8. MAGNESIUM OXIDE (MAG-OX) [Concomitant]
  9. SENNA/DOCUSATE (SENOKOT-S) [Concomitant]
  10. TEMSIROLIMUS [Suspect]
     Indication: B-CELL LYMPHOMA
     Dosage: 25 MG  DAYS 1, 8, 15, 22, 29
  11. DECADRON [Concomitant]
  12. OXYCODONE, IMMEDIATE RELEASE (RICODONE) [Concomitant]
  13. PROCHLORPERAZINE (COMPAZINE) [Concomitant]

REACTIONS (9)
  - VOMITING [None]
  - ASTHENIA [None]
  - CLOSTRIDIAL INFECTION [None]
  - DIARRHOEA [None]
  - PYREXIA [None]
  - NAUSEA [None]
  - TACHYCARDIA [None]
  - ABDOMINAL PAIN [None]
  - NEUTROPENIA [None]
